FAERS Safety Report 7608575-6 (Version None)
Quarter: 2011Q3

REPORT INFORMATION
  Report Type: 
  Country: None (occurrence: None)
  Receive Date: 20110714
  Receipt Date: 20110704
  Transmission Date: 20111222
  Serious: Yes (Congenital Anomaly)
  Sender: FDA-Public Use
  Company Number: GB-JNJFOC-20110107179

PATIENT
  Sex: Female
  Weight: 1.37 kg

DRUGS (3)
  1. FOLIC ACID [Concomitant]
     Route: 064
     Dates: start: 20100701
  2. INFLIXIMAB, RECOMBINANT [Suspect]
     Indication: MATERNAL EXPOSURE DURING PREGNANCY
     Route: 064
  3. AZATHIOPRINE [Suspect]
     Indication: MATERNAL EXPOSURE DURING PREGNANCY
     Route: 064

REACTIONS (5)
  - NEUTROPENIA [None]
  - TERATOGENICITY [None]
  - PREMATURE BABY [None]
  - SYNDACTYLY [None]
  - SMALL FOR DATES BABY [None]
